FAERS Safety Report 11291727 (Version 1)
Quarter: 2015Q3

REPORT INFORMATION
  Report Type: Spontaneous
  Country: US (occurrence: None)
  Receive Date: 20150721
  Receipt Date: 20150721
  Transmission Date: 20151125
  Serious: Yes (Hospitalization)
  Sender: FDA-Public Use
  Company Number: None

PATIENT
  Age: 68 Year
  Sex: Male
  Weight: 53.64 kg

DRUGS (3)
  1. ELOXATIN [Suspect]
     Active Substance: OXALIPLATIN
     Dosage: PATIENT RECEIVED 130 MG (85 MG/M2) IV ONCE OVER 2 HRS IN D5W 250 ML.
     Dates: start: 20150710
  2. LEUCOVORIN CALCIUM. [Suspect]
     Active Substance: LEUCOVORIN CALCIUM
     Dosage: PATIENT RECEIVED 605 MG (400 MG/M2) IV ONCE EVERY 2 HOURS IN D5W 250 ML.
     Dates: start: 20150710
  3. 5-FLUOROURACIL (5-FU) [Suspect]
     Active Substance: FLUOROURACIL
     Dosage: PATIENT RECEIVED 600 MG (400 MG/M2) IV ONCE PUSH. PATIENT ALSO RECEIVED 3625 MG (AT 2400 MG/M2) IV ONCE CONTINUOUS OVER 46 HOURS FROM 07/10/2015-07/12/2015.
     Dates: start: 20150710

REACTIONS (4)
  - Flatulence [None]
  - Constipation [None]
  - Abdominal distension [None]
  - Gastrointestinal sounds abnormal [None]

NARRATIVE: CASE EVENT DATE: 20150717
